FAERS Safety Report 7245825-2 (Version None)
Quarter: 2011Q1

REPORT INFORMATION
  Report Type: 
  Country: None (occurrence: None)
  Receive Date: 20110126
  Receipt Date: 20110118
  Transmission Date: 20110831
  Serious: Yes (Death, Other)
  Sender: FDA-Public Use
  Company Number: DE-MERCK-1101DEU00067

PATIENT
  Sex: Female

DRUGS (1)
  1. INVANZ [Suspect]
     Indication: INFECTION
     Route: 041
     Dates: end: 20110119

REACTIONS (2)
  - DEATH [None]
  - EPILEPSY [None]
